FAERS Safety Report 21783439 (Version 1)
Quarter: 2022Q4

REPORT INFORMATION
  Report Type: Spontaneous
  Country: GB (occurrence: GB)
  Receive Date: 20221227
  Receipt Date: 20221227
  Transmission Date: 20230113
  Serious: Yes (Other)
  Sender: FDA-Public Use
  Company Number: GB-VERTEX PHARMACEUTICALS-2022-019272

PATIENT
  Age: 32 Year
  Sex: Male

DRUGS (4)
  1. ELEXACAFTOR\IVACAFTOR\TEZACAFTOR [Suspect]
     Active Substance: ELEXACAFTOR\IVACAFTOR\TEZACAFTOR
     Indication: Cystic fibrosis
     Dosage: UNK
     Route: 048
     Dates: start: 202102, end: 202103
  2. ELEXACAFTOR\IVACAFTOR\TEZACAFTOR [Suspect]
     Active Substance: ELEXACAFTOR\IVACAFTOR\TEZACAFTOR
     Dosage: LOWER DOSE WITH THE INTENT THAT IT WOULD BE INCREASED SLOWLY TO FULL DOSE
     Route: 048
     Dates: start: 202104, end: 202105
  3. KALYDECO [Suspect]
     Active Substance: IVACAFTOR
     Indication: Cystic fibrosis
     Dosage: UNK
     Route: 048
     Dates: start: 202102, end: 202103
  4. KALYDECO [Suspect]
     Active Substance: IVACAFTOR
     Dosage: LOWER DOSE WITH THE INTENT THAT IT WOULD BE INCREASED SLOWLY TO FULL DOSE
     Route: 048
     Dates: start: 202104, end: 202105

REACTIONS (2)
  - Sinus operation [Unknown]
  - Diabetes mellitus [Not Recovered/Not Resolved]
